FAERS Safety Report 6943520-8 (Version None)
Quarter: 2010Q3

REPORT INFORMATION
  Report Type: 
  Country: None (occurrence: None)
  Receive Date: 20100825
  Receipt Date: 20100825
  Transmission Date: 20110219
  Serious: Yes (Hospitalization)
  Sender: FDA-Public Use
  Company Number: None

PATIENT
  Sex: Female
  Weight: 81.46 kg

DRUGS (2)
  1. FLUDARABINE PHOSPHATE [Suspect]
     Dosage: 240 MG
     Dates: end: 20100716
  2. RITUXIMAB [Suspect]
     Dosage: 1454 MG
     Dates: end: 20100712

REACTIONS (10)
  - AORTIC STENOSIS [None]
  - ATELECTASIS [None]
  - ATRIAL FIBRILLATION [None]
  - DIARRHOEA [None]
  - LEFT VENTRICULAR DYSFUNCTION [None]
  - LUNG INFILTRATION [None]
  - LYMPHADENOPATHY [None]
  - PLEURAL FIBROSIS [None]
  - RETROPERITONEAL LYMPHADENOPATHY [None]
  - SPLENOMEGALY [None]
